FAERS Safety Report 8845692 (Version 1)
Quarter: 2012Q4

REPORT INFORMATION
  Report Type: 
  Country: US (occurrence: US)
  Receive Date: 20121017
  Receipt Date: 20121017
  Transmission Date: 20130627
  Serious: No
  Sender: FDA-Public Use
  Company Number: US-ASTRAZENECA-2012SE72926

PATIENT
  Age: 49 Year
  Sex: Female

DRUGS (1)
  1. NEXIUM [Suspect]
     Route: 048

REACTIONS (7)
  - Nasopharyngitis [Unknown]
  - Nasal disorder [Unknown]
  - Cough [Unknown]
  - Eye pruritus [Unknown]
  - Lacrimation increased [Unknown]
  - Multiple allergies [Unknown]
  - Drug dose omission [Unknown]
